FAERS Safety Report 20247429 (Version 1)
Quarter: 2021Q4

REPORT INFORMATION
  Report Type: Spontaneous
  Country: DE (occurrence: DE)
  Receive Date: 20211229
  Receipt Date: 20211229
  Transmission Date: 20220304
  Serious: Yes (Hospitalization, Other)
  Sender: FDA-Public Use
  Company Number: DE-ADRED-05774-01

PATIENT
  Age: 61 Year
  Sex: Male

DRUGS (6)
  1. TAMSULOSIN [Suspect]
     Active Substance: TAMSULOSIN
     Dosage: .4 MILLIGRAM DAILY; 1-0-0-0
     Route: 048
  2. BISOPROLOL [Suspect]
     Active Substance: BISOPROLOL
     Dosage: 5 MILLIGRAM DAILY; 1-0-0-0
     Route: 048
  3. HYDROCHLOROTHIAZIDE\LOSARTAN POTASSIUM [Suspect]
     Active Substance: HYDROCHLOROTHIAZIDE\LOSARTAN POTASSIUM
     Dosage: 2 DOSAGE FORMS DAILY; 12.5 |50 MG, 1-1-0-0; LORZAAR PLUS 50/12,5MG
     Route: 048
  4. Magno sanol [Concomitant]
     Dosage: 150 MILLIGRAM DAILY; 1-0-0-0; MAGNO SANOL 150MG
     Route: 048
  5. ROSUVASTATIN [Concomitant]
     Active Substance: ROSUVASTATIN
     Dosage: 10 MILLIGRAM DAILY; 0-0-1-0
     Route: 048
  6. XARELTO [Concomitant]
     Active Substance: RIVAROXABAN
     Dosage: 20 MILLIGRAM DAILY; 1-0-0-0
     Route: 048

REACTIONS (4)
  - Presyncope [Unknown]
  - Syncope [Unknown]
  - Chest discomfort [Unknown]
  - Hyperhidrosis [Unknown]
